FAERS Safety Report 17125418 (Version 2)
Quarter: 2019Q4

REPORT INFORMATION
  Report Type: Spontaneous
  Country: US (occurrence: US)
  Receive Date: 20191207
  Receipt Date: 20191216
  Transmission Date: 20200122
  Serious: Yes (Hospitalization, Other)
  Sender: FDA-Public Use
  Company Number: US-AUROBINDO-AUR-APL-2019-103526

PATIENT
  Age: 67 Year
  Sex: Male

DRUGS (13)
  1. VANCOMYCIN [Suspect]
     Active Substance: VANCOMYCIN
     Indication: STAPHYLOCOCCAL INFECTION
     Dosage: UNK
     Route: 065
  2. PIPERACILLIN AND TAZOBACTAM [Suspect]
     Active Substance: PIPERACILLIN SODIUM\TAZOBACTAM SODIUM
     Indication: PSEUDOMONAS INFECTION
  3. PREDNISONE. [Suspect]
     Active Substance: PREDNISONE
     Dosage: 20 MILLIGRAM, DAILY
     Route: 065
  4. PREDNISONE. [Suspect]
     Active Substance: PREDNISONE
     Dosage: 10 MILLIGRAM, DAILY
     Route: 065
  5. PREDNISONE. [Suspect]
     Active Substance: PREDNISONE
     Indication: PSEUDOMONAS INFECTION
     Dosage: 40 MILLIGRAM, DAILY
     Route: 065
  6. CIPROFLOXACIN. [Suspect]
     Active Substance: CIPROFLOXACIN
     Indication: PSEUDOMONAS INFECTION
     Dosage: 500 MILLIGRAM, TWO TIMES A DAY
     Route: 048
  7. VANCOMYCIN [Suspect]
     Active Substance: VANCOMYCIN
     Indication: PSEUDOMONAS INFECTION
  8. PIPERACILLIN AND TAZOBACTAM [Suspect]
     Active Substance: PIPERACILLIN SODIUM\TAZOBACTAM SODIUM
     Indication: STAPHYLOCOCCAL INFECTION
     Dosage: UNK
     Route: 065
  9. DOXYCYCLINE. [Suspect]
     Active Substance: DOXYCYCLINE
     Indication: PSEUDOMONAS INFECTION
     Dosage: 100 MILLIGRAM, TWO TIMES A DAY
     Route: 048
  10. DOXYCYCLINE. [Suspect]
     Active Substance: DOXYCYCLINE
     Indication: STAPHYLOCOCCAL INFECTION
  11. CIPROFLOXACIN. [Suspect]
     Active Substance: CIPROFLOXACIN
     Indication: STAPHYLOCOCCAL INFECTION
  12. PREDNISONE. [Suspect]
     Active Substance: PREDNISONE
     Indication: STAPHYLOCOCCAL INFECTION
     Dosage: 30 MILLIGRAM, DAILY
     Route: 065
  13. PREDNISONE. [Suspect]
     Active Substance: PREDNISONE
     Dosage: 100 MILLIGRAM, DAILY
     Route: 065

REACTIONS (8)
  - Skin ulcer [Recovering/Resolving]
  - Arrhythmia [Unknown]
  - Cardiac sarcoidosis [Recovering/Resolving]
  - Disease progression [Recovering/Resolving]
  - Treatment failure [Unknown]
  - Dehydration [Unknown]
  - Superinfection [Recovering/Resolving]
  - Syncope [Unknown]
